FAERS Safety Report 9032621 (Version 3)
Quarter: 2013Q2

REPORT INFORMATION
  Report Type: Report from Study
  Country: US (occurrence: US)
  Receive Date: 20130122
  Receipt Date: 20130510
  Transmission Date: 20140414
  Serious: Yes (Hospitalization)
  Sender: FDA-Public Use
  Company Number: PHEH2013US001677

PATIENT
  Age: 81 Year
  Sex: Male
  Weight: 90.25 kg

DRUGS (4)
  1. GLEEVEC [Suspect]
     Indication: CHRONIC MYELOID LEUKAEMIA
     Dosage: UNK
     Route: 048
     Dates: start: 20120917
  2. GLEEVEC [Suspect]
     Dosage: UNK
     Route: 048
     Dates: start: 20121017
  3. AMLODIPINE [Concomitant]
     Dosage: UNK UKN, UNK
     Route: 048
  4. METOPROLOL [Concomitant]
     Dosage: 30 MG, QD
     Route: 048

REACTIONS (3)
  - Hernia [Recovering/Resolving]
  - Abdominal pain [Recovering/Resolving]
  - White blood cell count increased [Recovering/Resolving]
